FAERS Safety Report 5442261-6 (Version None)
Quarter: 2007Q3

REPORT INFORMATION
  Report Type: 
  Country: None (occurrence: None)
  Receive Date: 20070904
  Receipt Date: 20070823
  Transmission Date: 20080115
  Serious: Yes (Hospitalization, Other)
  Sender: FDA-Public Use
  Company Number: AU-PFIZER INC-2007048090

PATIENT
  Sex: Male
  Weight: 114 kg

DRUGS (12)
  1. IDARUBICIN HCL [Suspect]
     Indication: ACUTE MYELOID LEUKAEMIA
     Route: 042
     Dates: start: 20070325, end: 20070506
  2. CYTARABINE [Suspect]
     Indication: ACUTE MYELOID LEUKAEMIA
     Route: 042
     Dates: start: 20070325, end: 20070510
  3. ETOPOSIDE [Suspect]
     Indication: ACUTE MYELOID LEUKAEMIA
     Route: 042
     Dates: start: 20070325, end: 20070509
  4. NEUPOGEN [Suspect]
     Indication: NEUTROPHIL COUNT INCREASED
     Route: 058
     Dates: start: 20070605, end: 20070624
  5. BLINDED IDARUBICIN [Suspect]
     Indication: STOMATITIS
     Route: 042
  6. NEULASTA [Suspect]
     Indication: NEUTROPHIL COUNT INCREASED
     Route: 058
     Dates: start: 20070406, end: 20070511
  7. NILSTAT [Concomitant]
     Route: 048
     Dates: start: 20070504, end: 20070620
  8. CHLORHEXIDINE GLUCONATE [Concomitant]
     Route: 048
     Dates: start: 20070604, end: 20070620
  9. ITRACONAZOLE [Concomitant]
     Route: 048
     Dates: start: 20070507, end: 20070620
  10. ACETAMINOPHEN W/ CODEINE [Concomitant]
     Route: 048
     Dates: start: 20070605, end: 20070606
  11. COLOXYL WITH SENNA [Concomitant]
     Route: 048
     Dates: start: 20070606, end: 20070627
  12. VALTREX [Concomitant]
     Route: 048
     Dates: start: 20070505, end: 20070620

REACTIONS (4)
  - FEBRILE NEUTROPENIA [None]
  - INFECTION [None]
  - NEUTROPENIA [None]
  - THROMBOCYTOPENIA [None]
